FAERS Safety Report 14279559 (Version 2)
Quarter: 2018Q1

REPORT INFORMATION
  Report Type: Report from Study
  Country: US (occurrence: US)
  Receive Date: 20171212
  Receipt Date: 20180323
  Transmission Date: 20180508
  Serious: Yes (Other)
  Sender: FDA-Public Use
  Company Number: US-TESARO, INC-US-2017TSO04389

PATIENT

DRUGS (7)
  1. CITRACAL-D [Concomitant]
     Indication: PRODUCT USED FOR UNKNOWN INDICATION
     Dosage: 3.15-200 MG, QD
     Route: 048
  2. PROZAC [Concomitant]
     Active Substance: FLUOXETINE HYDROCHLORIDE
     Indication: PRODUCT USED FOR UNKNOWN INDICATION
     Dosage: 10 MG, QD
     Route: 048
  3. ZEJULA [Suspect]
     Active Substance: NIRAPARIB
     Indication: OVARIAN CANCER
     Dosage: 300 MG, QD
     Route: 048
     Dates: start: 20170509, end: 20170619
  4. ZEJULA [Suspect]
     Active Substance: NIRAPARIB
     Dosage: 100 MG, QD
     Route: 048
     Dates: start: 20170711, end: 20171113
  5. ATIVAN [Concomitant]
     Active Substance: LORAZEPAM
     Indication: ANXIETY
     Dosage: 0.5 MG, Q6HOURS,PRN
     Route: 048
  6. SENOKOT [Concomitant]
     Active Substance: SENNOSIDES
     Indication: PRODUCT USED FOR UNKNOWN INDICATION
     Dosage: 8.6 MG, QD
     Route: 048
  7. VITAMIN D3 [Concomitant]
     Active Substance: CHOLECALCIFEROL
     Indication: OSTEOPOROSIS
     Dosage: 1000 UNITS, QD
     Route: 048

REACTIONS (19)
  - Obstruction [Unknown]
  - Ovarian cancer recurrent [Not Recovered/Not Resolved]
  - Non-cardiac chest pain [Unknown]
  - Blood alkaline phosphatase increased [Unknown]
  - Ascites [Unknown]
  - Effusion [Unknown]
  - Carbohydrate antigen 125 increased [Not Recovered/Not Resolved]
  - Abdominal pain [Unknown]
  - Renal mass [Unknown]
  - Family stress [Unknown]
  - Bowel movement irregularity [Recovering/Resolving]
  - Insomnia [Unknown]
  - Abdominal operation [Recovered/Resolved]
  - Metastases to liver [Not Recovered/Not Resolved]
  - Abdominal lymphadenopathy [Unknown]
  - Tremor [Unknown]
  - Abdominal distension [Recovering/Resolving]
  - Hydronephrosis [Unknown]
  - Disease progression [Not Recovered/Not Resolved]

NARRATIVE: CASE EVENT DATE: 20170927
